FAERS Safety Report 7055223-2 (Version None)
Quarter: 2010Q4

REPORT INFORMATION
  Report Type: 
  Country: None (occurrence: None)
  Receive Date: 20101021
  Receipt Date: 20101013
  Transmission Date: 20110411
  Serious: Yes (Hospitalization, Other)
  Sender: FDA-Public Use
  Company Number: US-US-EMD SERONO, INC.-232440J10USA

PATIENT
  Sex: Female
  Weight: 87 kg

DRUGS (5)
  1. REBIF [Suspect]
     Indication: RELAPSING-REMITTING MULTIPLE SCLEROSIS
     Route: 058
     Dates: start: 20080903
  2. BIRTH CONTROL [Concomitant]
     Indication: MENSTRUATION IRREGULAR
     Dates: start: 20000101, end: 20100101
  3. IRON PILLS [Concomitant]
     Indication: BLOOD IRON DECREASED
  4. CLONAZEPAM [Concomitant]
     Indication: MUSCLE SPASTICITY
  5. BLOOD PRESSURE MEDICATION [Concomitant]
     Indication: FAMILIAL RISK FACTOR

REACTIONS (2)
  - LIVER DISORDER [None]
  - UTERINE LEIOMYOMA [None]
